FAERS Safety Report 16898760 (Version 2)
Quarter: 2020Q1

REPORT INFORMATION
  Report Type: Spontaneous
  Country: US (occurrence: US)
  Receive Date: 20191009
  Receipt Date: 20200211
  Transmission Date: 20200409
  Serious: Yes (Other)
  Sender: FDA-Public Use
  Company Number: US-BIOCODEX SA-201901244

PATIENT

DRUGS (5)
  1. RITALIN [Concomitant]
     Active Substance: METHYLPHENIDATE HYDROCHLORIDE
     Indication: PRODUCT USED FOR UNKNOWN INDICATION
     Route: 065
  2. EPIDOLEX [Concomitant]
     Indication: PRODUCT USED FOR UNKNOWN INDICATION
     Route: 065
  3. DIACOMIT [Suspect]
     Active Substance: STIRIPENTOL
     Indication: SEVERE MYOCLONIC EPILEPSY OF INFANCY
     Dosage: 125MG IN THE AM AND 250MG IN THE PM
     Route: 065
     Dates: start: 20190511
  4. CLOBAZAM. [Concomitant]
     Active Substance: CLOBAZAM
     Indication: SEVERE MYOCLONIC EPILEPSY OF INFANCY
     Route: 065
  5. SINGULAIR [Concomitant]
     Active Substance: MONTELUKAST SODIUM
     Indication: PRODUCT USED FOR UNKNOWN INDICATION
     Route: 065

REACTIONS (2)
  - Seizure [Unknown]
  - Condition aggravated [Unknown]

NARRATIVE: CASE EVENT DATE: 20190913
